FAERS Safety Report 14590555 (Version 1)
Quarter: 2018Q1

REPORT INFORMATION
  Report Type: Spontaneous
  Country: US (occurrence: US)
  Receive Date: 20180302
  Receipt Date: 20180302
  Transmission Date: 20180509
  Serious: Yes (Death)
  Sender: FDA-Public Use
  Company Number: PHEH2018US008284

PATIENT
  Age: 47 Year
  Sex: Female
  Weight: 95.24 kg

DRUGS (1)
  1. ZOMETA [Suspect]
     Active Substance: ZOLEDRONIC ACID
     Indication: PLASMA CELL MYELOMA
     Dosage: 4 MG, QMO
     Route: 042
     Dates: start: 20110307, end: 20150821

REACTIONS (1)
  - Death [Fatal]

NARRATIVE: CASE EVENT DATE: 20150927
